FAERS Safety Report 24360905 (Version 1)
Quarter: 2024Q3

REPORT INFORMATION
  Report Type: Spontaneous
  Country: US (occurrence: None)
  Receive Date: 20240924
  Receipt Date: 20240924
  Transmission Date: 20241016
  Serious: Yes (Other)
  Sender: Public
  Company Number: None

PATIENT
  Age: 52 Year
  Sex: Female

DRUGS (6)
  1. VEOZAH [Suspect]
     Active Substance: FEZOLINETANT
     Indication: Menopause
     Dosage: ORAL
     Route: 048
     Dates: start: 20240307, end: 20240412
  2. LEVOTHYROXINE [Concomitant]
     Active Substance: LEVOTHYROXINE\LEVOTHYROXINE SODIUM
  3. ATORVASTATIN [Concomitant]
     Active Substance: ATORVASTATIN
  4. Nuun Sport Hydration [Concomitant]
  5. VEOZAH [Concomitant]
     Active Substance: FEZOLINETANT
  6. Multivitamin [Concomitant]

REACTIONS (7)
  - Liver injury [None]
  - Mental disorder [None]
  - Chills [None]
  - Pyrexia [None]
  - Feeling abnormal [None]
  - Impaired work ability [None]
  - Pruritus [None]

NARRATIVE: CASE EVENT DATE: 20240408
